FAERS Safety Report 7334511-6 (Version None)
Quarter: 2011Q1

REPORT INFORMATION
  Report Type: 
  Country: None (occurrence: None)
  Receive Date: 20110307
  Receipt Date: 20110228
  Transmission Date: 20110831
  Serious: Yes (Death)
  Sender: FDA-Public Use
  Company Number: US-AMGEN-USASP2011011564

PATIENT
  Age: 67 Year
  Sex: Male

DRUGS (1)
  1. NPLATE [Suspect]
     Indication: PRODUCT USED FOR UNKNOWN INDICATION

REACTIONS (4)
  - RESPIRATORY FAILURE [None]
  - MANTLE CELL LYMPHOMA [None]
  - MULTI-ORGAN FAILURE [None]
  - DISEASE PROGRESSION [None]
